FAERS Safety Report 17508718 (Version 1)
Quarter: 2020Q1

REPORT INFORMATION
  Report Type: Spontaneous
  Country: US (occurrence: US)
  Receive Date: 20200305
  Receipt Date: 20200305
  Transmission Date: 20200409
  Serious: Yes (Disabling, Other)
  Sender: FDA-Public Use
  Company Number: None

PATIENT
  Age: 5 Year
  Sex: Male
  Weight: 18.9 kg

DRUGS (1)
  1. OSELTAMIVIR PHOSPHATE FOR ORAL SUSPENSION GENERIC FOR TAMIFLU [Suspect]
     Active Substance: OSELTAMIVIR PHOSPHATE
     Indication: INFLUENZA
     Dosage: ?          QUANTITY:7.5 ML;OTHER FREQUENCY:ONCE;?
     Route: 048
     Dates: start: 20200223, end: 20200223

REACTIONS (5)
  - Hallucination [None]
  - Pain in extremity [None]
  - Anxiety [None]
  - Sleep terror [None]
  - Confusional state [None]

NARRATIVE: CASE EVENT DATE: 20200223
